FAERS Safety Report 13078953 (Version 9)
Quarter: 2018Q3

REPORT INFORMATION
  Report Type: Report from Study
  Country: BR (occurrence: BR)
  Receive Date: 20170102
  Receipt Date: 20180824
  Transmission Date: 20181010
  Serious: Yes (Hospitalization, Other)
  Sender: FDA-Public Use
  Company Number: PHHY2016BR023951

PATIENT
  Age: 87 Year
  Sex: Female
  Weight: 70 kg

DRUGS (8)
  1. PANTOPRAZOLE [Concomitant]
     Active Substance: PANTOPRAZOLE
     Indication: PRODUCT USED FOR UNKNOWN INDICATION
     Dosage: IN MORNING, FASTING
     Route: 065
  2. SANDOSTATIN LAR DEPOT [Suspect]
     Active Substance: OCTREOTIDE ACETATE
     Dosage: 40 MG, QMO (TWO OF 20 MG, TOTALIZING 40 MG)
     Route: 030
  3. BENICAR [Concomitant]
     Active Substance: OLMESARTAN MEDOXOMIL
     Indication: HYPERTENSION
     Dosage: 20 MG, QD
     Route: 048
  4. OLMECAN [Concomitant]
     Indication: BLOOD PRESSURE ABNORMAL
     Dosage: UNK UNK, QD
     Route: 065
  5. SANDOSTATIN LAR DEPOT [Suspect]
     Active Substance: OCTREOTIDE ACETATE
     Indication: HEPATIC NEOPLASM
     Dosage: 30 MG, Q2MO
     Route: 030
  6. SANDOSTATIN LAR DEPOT [Suspect]
     Active Substance: OCTREOTIDE ACETATE
     Dosage: 30 MG, Q3MO
     Route: 030
  7. SANDOSTATIN LAR DEPOT [Suspect]
     Active Substance: OCTREOTIDE ACETATE
     Dosage: 30 MG, EVERY 28 DAYS (GLUTEAL APPLICATION)
     Route: 030
     Dates: end: 201709
  8. SANDOSTATIN LAR DEPOT [Suspect]
     Active Substance: OCTREOTIDE ACETATE
     Indication: NEUROENDOCRINE TUMOUR
     Dosage: 30 MG, QMO (ONCE A MONTH)
     Route: 030
     Dates: start: 20110701

REACTIONS (46)
  - Malaise [Recovered/Resolved]
  - Blood pressure decreased [Recovered/Resolved]
  - Body height decreased [Unknown]
  - Dizziness [Recovered/Resolved]
  - Malignant neoplasm progression [Unknown]
  - Agitation [Unknown]
  - Labyrinthitis [Unknown]
  - Urinary tract infection [Recovered/Resolved]
  - Pain [Recovered/Resolved]
  - Chest pain [Recovering/Resolving]
  - Headache [Unknown]
  - Dizziness [Recovering/Resolving]
  - Hypersensitivity [Recovered/Resolved]
  - Therapy non-responder [Unknown]
  - Burning sensation [Recovered/Resolved]
  - Fall [Recovering/Resolving]
  - Weight increased [Unknown]
  - Nervousness [Unknown]
  - Humerus fracture [Recovering/Resolving]
  - Malaise [Recovering/Resolving]
  - Malaise [Recovered/Resolved]
  - Head injury [Unknown]
  - Somnolence [Unknown]
  - Abnormal faeces [Unknown]
  - Inappropriate schedule of drug administration [Unknown]
  - Dizziness [Recovered/Resolved]
  - Pain [Unknown]
  - Fatigue [Not Recovered/Not Resolved]
  - Burning sensation [Recovering/Resolving]
  - Drug ineffective [Unknown]
  - Blood pressure increased [Recovered/Resolved]
  - Feeling hot [Recovered/Resolved]
  - Pollakiuria [Recovering/Resolving]
  - Limb injury [Unknown]
  - Fear [Unknown]
  - Anxiety [Unknown]
  - Vulvovaginal burning sensation [Recovering/Resolving]
  - Abdominal pain [Unknown]
  - Nausea [Recovering/Resolving]
  - Deafness [Not Recovered/Not Resolved]
  - Serum serotonin increased [Unknown]
  - Back pain [Unknown]
  - Feeling hot [Recovering/Resolving]
  - Fatigue [Recovered/Resolved]
  - Weight decreased [Recovered/Resolved]
  - Blood pressure fluctuation [Recovered/Resolved]

NARRATIVE: CASE EVENT DATE: 201608
